FAERS Safety Report 7015347-2 (Version None)
Quarter: 2010Q3

REPORT INFORMATION
  Report Type: 
  Country: None (occurrence: None)
  Receive Date: 20100924
  Receipt Date: 20100924
  Transmission Date: 20110219
  Serious: Yes (Hospitalization)
  Sender: FDA-Public Use
  Company Number: None

PATIENT
  Age: 73 Year
  Sex: Male
  Weight: 103 kg

DRUGS (1)
  1. SIMVASTATIN [Suspect]
     Indication: HYPERLIPIDAEMIA
     Dosage: 80 MG QHS PO
     Route: 048

REACTIONS (4)
  - FATIGUE [None]
  - PAIN IN EXTREMITY [None]
  - RHABDOMYOLYSIS [None]
  - WEIGHT DECREASED [None]
